APPROVED DRUG PRODUCT: GLYBURIDE
Active Ingredient: GLYBURIDE
Strength: 5MG
Dosage Form/Route: TABLET;ORAL
Application: A090937 | Product #003 | TE Code: AB1
Applicant: HERITAGE PHARMACEUTICALS INC DBA AVET PHARMACEUTICALS INC
Approved: Feb 28, 2011 | RLD: No | RS: No | Type: RX